FAERS Safety Report 7752929-4 (Version None)
Quarter: 2011Q3

REPORT INFORMATION
  Report Type: 
  Country: None (occurrence: None)
  Receive Date: 20110915
  Receipt Date: 20110906
  Transmission Date: 20111222
  Serious: Yes (Hospitalization)
  Sender: FDA-Public Use
  Company Number: DE-SANOFI-AVENTIS-2011SA052255

PATIENT
  Age: 70 Year
  Sex: Male
  Weight: 75 kg

DRUGS (12)
  1. METOPROLOL TARTRATE [Concomitant]
     Indication: CARDIOVASCULAR EVENT PROPHYLAXIS
     Dates: start: 20101126
  2. CALCIPOTRIOL [Concomitant]
     Indication: PSORIASIS
     Dates: start: 19960101
  3. DARVOCET-N 50 [Concomitant]
     Indication: PSORIASIS
     Dates: start: 19960101
  4. BLINDED THERAPY [Suspect]
     Indication: NON-SMALL CELL LUNG CANCER
     Route: 042
     Dates: start: 20110627, end: 20110627
  5. VERGENTAN [Concomitant]
     Indication: PREMEDICATION
     Dates: start: 20110627, end: 20110720
  6. PANTOPRAZOLE [Concomitant]
     Indication: PROPHYLAXIS
     Dates: start: 20100716
  7. DOCETAXEL [Suspect]
     Route: 042
     Dates: start: 20110718, end: 20110718
  8. DEXAMETHASONE [Concomitant]
     Indication: PREMEDICATION
     Dates: start: 20110626, end: 20110719
  9. METFORMIN HYDROCHLORIDE [Concomitant]
     Dates: start: 19860101
  10. DOCETAXEL [Suspect]
     Indication: NON-SMALL CELL LUNG CANCER
     Route: 042
     Dates: start: 20110627, end: 20110627
  11. GLIMEPIRIDE [Concomitant]
     Dates: start: 19860101
  12. BLINDED THERAPY [Suspect]
     Route: 042
     Dates: start: 20110718, end: 20110718

REACTIONS (1)
  - PSORIASIS [None]
